FAERS Safety Report 9162300 (Version 2)
Quarter: 2013Q1

REPORT INFORMATION
  Report Type: Spontaneous
  Country: US (occurrence: None)
  Receive Date: 20130222
  Receipt Date: 20130321
  Transmission Date: 20140127
  Serious: Yes (Other)
  Sender: FDA-Public Use
  Company Number: CRC-13-113

PATIENT
  Sex: Female

DRUGS (1)
  1. VIT D (ERGOCALCIFEROL CAPS) [Suspect]
     Dosage: 1 CAPS DAILY X2 DAYS
     Route: 048
     Dates: start: 20130205, end: 20130206

REACTIONS (4)
  - Inappropriate schedule of drug administration [None]
  - Fatigue [None]
  - Chest pain [None]
  - Dizziness [None]
